FAERS Safety Report 17788457 (Version 1)
Quarter: 2020Q2

REPORT INFORMATION
  Report Type: Spontaneous
  Country: GB (occurrence: GB)
  Receive Date: 20200514
  Receipt Date: 20200514
  Transmission Date: 20200714
  Serious: Yes (Death, Life-Threatening, Hospitalization)
  Sender: FDA-Public Use
  Company Number: GB-MYLANLABS-2020M1046579

PATIENT
  Age: 84 Year
  Sex: Male
  Weight: 64.6 kg

DRUGS (1)
  1. TRAZODONE [Suspect]
     Active Substance: TRAZODONE HYDROCHLORIDE
     Indication: DEPRESSION
     Dosage: 150 MILLIGRAM, QD (50MG IN THE MORNING AND 100MG IN THE EVENING)
     Route: 048
     Dates: start: 20200416, end: 20200416

REACTIONS (2)
  - Coronavirus infection [Fatal]
  - Liver injury [Not Recovered/Not Resolved]
